FAERS Safety Report 10153944 (Version 1)
Quarter: 2014Q2

REPORT INFORMATION
  Report Type: Spontaneous
  Country: US (occurrence: US)
  Receive Date: 20140506
  Receipt Date: 20140506
  Transmission Date: 20141212
  Serious: No
  Sender: FDA-Public Use
  Company Number: US-SHIRE-US201401549

PATIENT
  Age: 90 Year
  Sex: Female
  Weight: 40.82 kg

DRUGS (6)
  1. LIALDA [Suspect]
     Indication: CROHN^S DISEASE
     Dosage: 2.4 G (TWO 1.2 G TABLETS), UNKNOWN (DAILY)
     Route: 048
     Dates: start: 2014
  2. LIALDA [Suspect]
     Dosage: UNK UNK, UNKNOWN (TWO 1.2 G TABLETS DAILY)
     Route: 048
  3. SOTALOL [Concomitant]
     Indication: PRODUCT USED FOR UNKNOWN INDICATION
     Dosage: 160 MG (TWO 80 MG), OTHER (DAILY)
     Route: 065
  4. GABAPENTIN [Concomitant]
     Indication: PRODUCT USED FOR UNKNOWN INDICATION
     Dosage: 300 MG, 3X/DAY:TID
     Route: 065
  5. AMLODIPINE [Concomitant]
     Indication: PRODUCT USED FOR UNKNOWN INDICATION
     Dosage: 2.5 MG, 1X/DAY:QD
     Route: 065
  6. OTHER THERAPEUTIC PRODUCTS [Concomitant]
     Indication: BLOOD PRESSURE INCREASED
     Dosage: UNK, UNKNOWN
     Route: 065

REACTIONS (2)
  - Alopecia [Not Recovered/Not Resolved]
  - Off label use [Not Recovered/Not Resolved]
